FAERS Safety Report 7308771-1 (Version None)
Quarter: 2011Q1

REPORT INFORMATION
  Report Type: 
  Country: None (occurrence: None)
  Receive Date: 20110223
  Receipt Date: 20110214
  Transmission Date: 20110831
  Serious: Yes (Other)
  Sender: FDA-Public Use
  Company Number: PHHY2011GR11950

PATIENT
  Age: 54 Year
  Sex: Female

DRUGS (3)
  1. CORTICOSTEROID NOS [Concomitant]
     Indication: PUSTULAR PSORIASIS
  2. ETANERCEPT [Concomitant]
     Indication: PUSTULAR PSORIASIS
     Dosage: 50 MG, UNK
     Route: 058
     Dates: start: 20060101
  3. NEORAL [Suspect]
     Indication: PUSTULAR PSORIASIS

REACTIONS (3)
  - PSORIASIS [None]
  - GLAUCOMA [None]
  - HYPERTENSION [None]
